FAERS Safety Report 20485624 (Version 1)
Quarter: 2022Q1

REPORT INFORMATION
  Report Type: Spontaneous
  Country: CA (occurrence: CA)
  Receive Date: 20220217
  Receipt Date: 20220217
  Transmission Date: 20220423
  Serious: Yes (Hospitalization, Other)
  Sender: FDA-Public Use
  Company Number: CA-ELI_LILLY_AND_COMPANY-CA202202003450

PATIENT
  Age: 36 Year
  Sex: Female

DRUGS (6)
  1. DULOXETINE HYDROCHLORIDE [Interacting]
     Active Substance: DULOXETINE HYDROCHLORIDE
     Indication: Pain
     Dosage: 60 MG, UNKNOWN
     Route: 048
  2. ACETAMINOPHEN [Interacting]
     Active Substance: ACETAMINOPHEN
     Indication: Pain
     Dosage: 325 MG, UNKNOWN
     Route: 048
  3. AMITRIPTYLINE [Interacting]
     Active Substance: AMITRIPTYLINE
     Indication: Pain
     Dosage: 10 MG, UNKNOWN
     Route: 048
  4. PREGABALIN [Interacting]
     Active Substance: PREGABALIN
     Indication: Pain
     Dosage: 150 MG, UNKNOWN
     Route: 048
  5. TRAMADOL [Interacting]
     Active Substance: TRAMADOL
     Indication: Pain
     Dosage: 187.5 MG, UNKNOWN
     Route: 048
  6. TRIAZOLAM [Interacting]
     Active Substance: TRIAZOLAM
     Indication: Pain
     Dosage: 0.25 MG, DAILY
     Route: 048

REACTIONS (2)
  - Labelled drug-drug interaction issue [Recovered/Resolved]
  - Serotonin syndrome [Recovered/Resolved]
